FAERS Safety Report 12127258 (Version 1)
Quarter: 2016Q1

REPORT INFORMATION
  Report Type: Other
  Country: US (occurrence: US)
  Receive Date: 20160229
  Receipt Date: 20160229
  Transmission Date: 20160526
  Serious: Yes (Other)
  Sender: FDA-Public Use
  Company Number: US-SIM_00696_2016

PATIENT
  Sex: Female

DRUGS (2)
  1. DRY EYE RELIEF (HOMEOPATHIC) [Suspect]
     Active Substance: HOMEOPATHICS
     Indication: PRODUCT USED FOR UNKNOWN INDICATION
     Dosage: 2 DROPS IN EACH EYE/BID/
     Route: 047
     Dates: start: 20160116, end: 20160116
  2. DRY EYE RELIEF (HOMEOPATHIC) [Suspect]
     Active Substance: HOMEOPATHICS
     Dosage: 2 DROPS IN EACH EYE/ONCE/
     Route: 047
     Dates: start: 20160117, end: 20160117

REACTIONS (3)
  - Vision blurred [Recovered/Resolved]
  - Drug hypersensitivity [Recovered/Resolved]
  - Intentional product misuse [Recovered/Resolved]

NARRATIVE: CASE EVENT DATE: 20160116
